FAERS Safety Report 11059719 (Version 2)
Quarter: 2015Q3

REPORT INFORMATION
  Report Type: Report from Study
  Country: JP (occurrence: JP)
  Receive Date: 20150423
  Receipt Date: 20150713
  Transmission Date: 20151125
  Serious: Yes (Other)
  Sender: FDA-Public Use
  Company Number: JP-TEVA-555677ISR

PATIENT
  Age: 50 Year
  Sex: Female

DRUGS (13)
  1. NEXIUM [Concomitant]
     Active Substance: ESOMEPRAZOLE MAGNESIUM
     Indication: PROPHYLAXIS
     Dosage: 10 MILLIGRAM DAILY; CONTINUING
     Route: 048
     Dates: start: 20150302
  2. LEUCOVORIN. [Concomitant]
     Active Substance: LEUCOVORIN
     Indication: PROPHYLAXIS
     Dosage: 60 MILLIGRAM DAILY;
     Route: 042
     Dates: start: 20150304, end: 20150307
  3. GRANISETRON [Concomitant]
     Active Substance: GRANISETRON
     Indication: PROPHYLAXIS
     Dosage: 2 MILLIGRAM DAILY;
     Route: 042
     Dates: start: 20150303, end: 20150306
  4. IFOMIDE [Suspect]
     Active Substance: IFOSFAMIDE
     Indication: NATURAL KILLER-CELL LEUKAEMIA
     Dosage: 2.1 GRAM DAILY;
     Route: 042
     Dates: start: 20150304, end: 20150306
  5. UROMITEXAN [Concomitant]
     Active Substance: MESNA
     Indication: PROPHYLAXIS
     Dosage: 1275 MILLIGRAM DAILY;
     Route: 042
     Dates: start: 20150304, end: 20150306
  6. LEUNASE [Concomitant]
     Active Substance: ASPARAGINASE
     Indication: NATURAL KILLER-CELL LEUKAEMIA
     Dosage: 8500 DOSAGE FORMS DAILY; 8500 UNITS/DAY (EVERY OTHER DAY)
     Route: 042
     Dates: start: 20150310, end: 20150322
  7. FILGRASTIM BS INJ.NK [Suspect]
     Active Substance: FILGRASTIM
     Indication: NEUTROPENIA
     Dosage: 50 MICROGRAM/M2 DAILY;
     Route: 058
     Dates: start: 20150308, end: 20150315
  8. DIAMOX SEQUELS [Concomitant]
     Active Substance: ACETAZOLAMIDE
     Indication: PROPHYLAXIS
     Dosage: 500 MILLIGRAM DAILY;
     Route: 042
     Dates: start: 20150303, end: 20150306
  9. FLUCONAZOLE. [Concomitant]
     Active Substance: FLUCONAZOLE
     Indication: PROPHYLAXIS
     Dosage: 200 MILLIGRAM DAILY;
     Route: 048
     Dates: start: 20150302
  10. METHOTREXATE [Suspect]
     Active Substance: METHOTREXATE
     Indication: NATURAL KILLER-CELL LEUKAEMIA
     Dosage: 2800 MILLIGRAM DAILY;
     Route: 042
     Dates: start: 20150303, end: 20150303
  11. VEPESID [Suspect]
     Active Substance: ETOPOSIDE
     Indication: NATURAL KILLER-CELL LEUKAEMIA
     Dosage: 140 MILLIGRAM DAILY;
     Route: 042
     Dates: start: 20150304, end: 20150306
  12. MEYLON [Concomitant]
     Active Substance: SODIUM BICARBONATE
     Indication: PROPHYLAXIS
     Dosage: 250 ML DAILY;
     Route: 042
     Dates: start: 20150303, end: 20150306
  13. DEXART [Concomitant]
     Active Substance: DEXAMETHASONE SODIUM PHOSPHATE
     Indication: NATURAL KILLER-CELL LEUKAEMIA
     Dosage: 33 MILLIGRAM DAILY;
     Route: 042
     Dates: start: 20150304, end: 20150306

REACTIONS (4)
  - White blood cell count decreased [Recovered/Resolved]
  - Platelet count decreased [Recovered/Resolved]
  - Alanine aminotransferase increased [Recovering/Resolving]
  - Neutrophil count decreased [Recovered/Resolved]

NARRATIVE: CASE EVENT DATE: 20150309
